FAERS Safety Report 4377704-2 (Version None)
Quarter: 2004Q2

REPORT INFORMATION
  Report Type: 
  Country: None (occurrence: None)
  Receive Date: 20040608
  Receipt Date: 20040525
  Transmission Date: 20050107
  Serious: Yes (Life-Threatening)
  Sender: FDA-Public Use
  Company Number: CIP04001134

PATIENT
  Age: 54 Year
  Sex: Female

DRUGS (2)
  1. ACTONEL [Suspect]
     Indication: OSTEOPOROSIS
     Dosage: 35 MG, ONCE WEEKLY, ORAL
     Route: 048
     Dates: start: 20031023
  2. CALCIUM ((CALCIUM GLUBIONATE) [Concomitant]

REACTIONS (9)
  - BACK PAIN [None]
  - CHROMATURIA [None]
  - DIZZINESS [None]
  - HAEMOGLOBINURIA [None]
  - HAEMOLYSIS [None]
  - INTRAVASCULAR HAEMOLYSIS [None]
  - PYREXIA [None]
  - RENAL FAILURE ACUTE [None]
  - RENAL TUBULAR NECROSIS [None]
